FAERS Safety Report 10093804 (Version 1)
Quarter: 2014Q2

REPORT INFORMATION
  Report Type: Spontaneous
  Country: US (occurrence: US)
  Receive Date: 20140421
  Receipt Date: 20140421
  Transmission Date: 20141212
  Serious: No
  Sender: FDA-Public Use
  Company Number: US-SANOFI-AVENTIS-2013SA082593

PATIENT
  Sex: Female

DRUGS (6)
  1. ALLEGRA [Suspect]
     Indication: NASAL CONGESTION
     Dosage: TAKEN FROM-COUPLE OF WEEKS AGO
     Route: 048
  2. ALLEGRA [Suspect]
     Indication: SNEEZING
     Dosage: TAKEN FROM-COUPLE OF WEEKS AGO
     Route: 048
  3. ALLEGRA [Suspect]
     Indication: LACRIMATION INCREASED
     Dosage: TAKEN FROM-COUPLE OF WEEKS AGO
     Route: 048
  4. ALLEGRA [Suspect]
     Indication: NASAL CONGESTION
     Dosage: TAKEN FROM- RECENTLY FOR 2 DAYS
     Route: 048
  5. ALLEGRA [Suspect]
     Indication: SNEEZING
     Dosage: TAKEN FROM- RECENTLY FOR 2 DAYS
     Route: 048
  6. ALLEGRA [Suspect]
     Indication: LACRIMATION INCREASED
     Dosage: TAKEN FROM- RECENTLY FOR 2 DAYS
     Route: 048

REACTIONS (2)
  - Dry eye [Unknown]
  - Visual impairment [Unknown]
